FAERS Safety Report 15000369 (Version 1)
Quarter: 2018Q2

REPORT INFORMATION
  Report Type: Spontaneous
  Country: CN (occurrence: CN)
  Receive Date: 20180612
  Receipt Date: 20180612
  Transmission Date: 20180711
  Serious: Yes (Other)
  Sender: FDA-Public Use
  Company Number: CN-PFIZER INC-2018233427

PATIENT
  Age: 3 Year
  Sex: Male
  Weight: 13 kg

DRUGS (1)
  1. SOLU-MEDROL [Suspect]
     Active Substance: METHYLPREDNISOLONE SODIUM SUCCINATE
     Indication: WHEEZING
     Dosage: 26 MG, 1X/DAY
     Route: 041
     Dates: start: 20180329, end: 20180329

REACTIONS (6)
  - Hypersensitivity [Recovered/Resolved]
  - Palpitations [Unknown]
  - Pruritus [Recovered/Resolved]
  - Mouth swelling [Recovering/Resolving]
  - Rash [Recovered/Resolved]
  - Lip swelling [Recovering/Resolving]

NARRATIVE: CASE EVENT DATE: 20180329
